FAERS Safety Report 6445641-5 (Version None)
Quarter: 2009Q4

REPORT INFORMATION
  Report Type: 
  Country: None (occurrence: None)
  Receive Date: 20091118
  Receipt Date: 20091118
  Transmission Date: 20100525
  Serious: Yes (Hospitalization, Other)
  Sender: FDA-Public Use
  Company Number: None

PATIENT
  Age: 42 Year
  Sex: Female
  Weight: 78.9259 kg

DRUGS (1)
  1. HYDROXYZINE PAMELOR  PAMOATE [Suspect]
     Indication: ANXIETY
     Dosage: 50MG Q 6 HOURS PO
     Route: 048
     Dates: start: 20091029, end: 20091030

REACTIONS (7)
  - ANXIETY [None]
  - APHAGIA [None]
  - DYSPNOEA [None]
  - HEART RATE IRREGULAR [None]
  - HYPERTENSION [None]
  - MULTIPLE ALLERGIES [None]
  - PALPITATIONS [None]
